FAERS Safety Report 20131254 (Version 1)
Quarter: 2021Q4

REPORT INFORMATION
  Report Type: Spontaneous
  Country: CO (occurrence: CO)
  Receive Date: 20211130
  Receipt Date: 20211130
  Transmission Date: 20220303
  Serious: Yes (Hospitalization, Other)
  Sender: FDA-Public Use
  Company Number: CO-COOPERSURGICAL, INC.-CO-2021CPS003564

PATIENT
  Age: 23 Year
  Sex: Female

DRUGS (1)
  1. PARAGARD T 380A [Suspect]
     Active Substance: COPPER
     Indication: Contraception
     Dosage: UNK
     Route: 015

REACTIONS (13)
  - Uterine fistula [Recovered/Resolved]
  - Colonic fistula [Recovered/Resolved]
  - Large intestine perforation [Recovered/Resolved]
  - Adhesion [Recovered/Resolved]
  - Pelvic inflammatory disease [Recovered/Resolved]
  - Embedded device [Recovered/Resolved]
  - Complication of device removal [Recovered/Resolved]
  - Uterine perforation [Recovered/Resolved]
  - Device dislocation [Recovered/Resolved]
  - Procedural pain [Recovered/Resolved]
  - Complication associated with device [Recovered/Resolved]
  - Pelvic pain [Recovered/Resolved]
  - Dysmenorrhoea [Recovered/Resolved]
